FAERS Safety Report 16249947 (Version 2)
Quarter: 2019Q2

REPORT INFORMATION
  Report Type: Spontaneous
  Country: PL (occurrence: PL)
  Receive Date: 20190429
  Receipt Date: 20190606
  Transmission Date: 20190711
  Serious: Yes (Death, Hospitalization)
  Sender: FDA-Public Use
  Company Number: PL-JNJFOC-20190440756

PATIENT
  Sex: Male

DRUGS (1)
  1. XARELTO [Suspect]
     Active Substance: RIVAROXABAN
     Indication: PRODUCT USED FOR UNKNOWN INDICATION
     Route: 048
     Dates: start: 201207

REACTIONS (7)
  - Prostate cancer [Fatal]
  - Metastases to bone [Fatal]
  - Pollakiuria [Unknown]
  - Pyrexia [Unknown]
  - Haematuria [Unknown]
  - Metastases to spine [Fatal]
  - Asthenia [Fatal]

NARRATIVE: CASE EVENT DATE: 20150508
